FAERS Safety Report 10578583 (Version 1)
Quarter: 2014Q4

REPORT INFORMATION
  Report Type: Spontaneous
  Country: US (occurrence: None)
  Receive Date: 20141111
  Receipt Date: 20141111
  Transmission Date: 20150529
  Serious: No
  Sender: FDA-Public Use
  Company Number: None

PATIENT
  Age: 24 Year
  Sex: Male
  Weight: 83.92 kg

DRUGS (1)
  1. DYMISTA [Suspect]
     Active Substance: AZELASTINE HYDROCHLORIDE\FLUTICASONE PROPIONATE
     Indication: SEASONAL ALLERGY
     Route: 055
     Dates: start: 20141029, end: 20141110

REACTIONS (2)
  - Headache [None]
  - Dyspnoea [None]

NARRATIVE: CASE EVENT DATE: 20141106
